FAERS Safety Report 17543678 (Version 1)
Quarter: 2020Q1

REPORT INFORMATION
  Report Type: Spontaneous
  Country: CA (occurrence: CA)
  Receive Date: 20200316
  Receipt Date: 20200316
  Transmission Date: 20200409
  Serious: Yes (Other)
  Sender: FDA-Public Use
  Company Number: CA-TEVA-2020-CA-1202044

PATIENT
  Age: 79 Year
  Sex: Female
  Weight: 74 kg

DRUGS (21)
  1. APO-NADOL [Concomitant]
     Active Substance: NADOLOL
     Indication: HYPERTENSION
     Dosage: 160 MILLIGRAM DAILY;
     Route: 048
  2. FLOVENT HFA [Concomitant]
     Active Substance: FLUTICASONE PROPIONATE
     Dosage: 500 MICROGRAM DAILY;
     Route: 055
  3. PMS-NYSTATIN [Concomitant]
     Dosage: 20 ML DAILY;
     Route: 048
  4. TYLENOL ARTHRITIS PAIN [Concomitant]
     Active Substance: ACETAMINOPHEN
     Indication: PAIN
     Dosage: 1300 MILLIGRAM DAILY;
     Route: 048
  5. APO-FLECAINIDE [Concomitant]
     Indication: ARRHYTHMIA
     Dosage: 200 MILLIGRAM DAILY;
     Route: 048
  6. FOLIC ACID GENERIC [Concomitant]
     Dosage: 1.4286 MILLIGRAM DAILY;
     Route: 048
  7. SYNTHROID [Concomitant]
     Active Substance: LEVOTHYROXINE SODIUM
     Indication: THYROID GLAND SCAN ABNORMAL
     Dosage: .112 MILLIGRAM DAILY;
     Route: 048
  8. JAMP VITAMIN D [Concomitant]
     Dosage: 1428.5714 IU (INTERNATIONAL UNIT) DAILY;
     Route: 048
  9. RAMIPRIL. [Concomitant]
     Active Substance: RAMIPRIL
     Dosage: 5 MILLIGRAM DAILY;
     Route: 048
  10. REFRESH CELLUVISC [Concomitant]
     Active Substance: CARBOXYMETHYLCELLULOSE SODIUM
     Indication: ANGINA PECTORIS
     Route: 047
  11. VENTOLIN HFA [Concomitant]
     Active Substance: ALBUTEROL SULFATE
     Dosage: 400 MICROGRAM DAILY;
     Route: 055
  12. METHOTREXATE. [Suspect]
     Active Substance: METHOTREXATE
     Indication: PRODUCT USED FOR UNKNOWN INDICATION
     Dosage: 2.8571 MILLIGRAM DAILY;
     Route: 065
  13. SANDOZ FLUOROMETHOLONE [Concomitant]
     Active Substance: FLUOROMETHOLONE
     Dosage: 1 GTT DAILY;
     Route: 061
  14. SANDOZ PANTOPRAZOL [Concomitant]
     Indication: GASTROOESOPHAGEAL REFLUX DISEASE
     Dosage: 40 MILLIGRAM DAILY;
     Route: 048
  15. XARELTO [Concomitant]
     Active Substance: RIVAROXABAN
     Indication: ANTICOAGULANT THERAPY
     Dosage: 20 MILLIGRAM DAILY;
     Route: 048
  16. ERYTHROMYCIN. [Concomitant]
     Active Substance: ERYTHROMYCIN
     Route: 061
  17. INFLIXIMAB [Concomitant]
     Active Substance: INFLIXIMAB
     Indication: RHEUMATOID ARTHRITIS
     Route: 042
  18. JAMP CALCIUM [Concomitant]
     Dosage: 1000 MILLIGRAM DAILY;
     Route: 048
  19. OCUFLOX [Concomitant]
     Active Substance: OFLOXACIN
     Route: 061
  20. APO-ATORVASTATIN [Concomitant]
     Active Substance: ATORVASTATIN
     Indication: BLOOD CHOLESTEROL INCREASED
     Dosage: 40 MILLIGRAM DAILY;
     Route: 048
  21. MINERAL OIL. [Concomitant]
     Active Substance: MINERAL OIL
     Route: 061

REACTIONS (6)
  - Eye infection [Unknown]
  - Rheumatoid arthritis [Unknown]
  - Wound dehiscence [Unknown]
  - Impaired healing [Unknown]
  - Drug ineffective [Unknown]
  - Keratitis [Unknown]
